FAERS Safety Report 7709268-7 (Version None)
Quarter: 2011Q3

REPORT INFORMATION
  Report Type: 
  Country: None (occurrence: None)
  Receive Date: 20110825
  Receipt Date: 20110822
  Transmission Date: 20111222
  Serious: Yes (Other)
  Sender: FDA-Public Use
  Company Number: PHHY2011BR40458

PATIENT
  Sex: Male

DRUGS (1)
  1. DIOVAN [Suspect]
     Indication: HYPERTENSION
     Dosage: 160 MG
     Route: 048

REACTIONS (3)
  - BLOOD PRESSURE INCREASED [None]
  - BLOOD PRESSURE FLUCTUATION [None]
  - BLOOD PRESSURE DECREASED [None]
